FAERS Safety Report 15572488 (Version 1)
Quarter: 2018Q4

REPORT INFORMATION
  Report Type: Spontaneous
  Country: FR (occurrence: FR)
  Receive Date: 20181031
  Receipt Date: 20181031
  Transmission Date: 20190205
  Serious: Yes (Hospitalization)
  Sender: FDA-Public Use
  Company Number: FR-GLAXOSMITHKLINE-FR2018197447

PATIENT
  Age: 2 Year
  Sex: Male
  Weight: 12.9 kg

DRUGS (1)
  1. LAMICTAL [Suspect]
     Active Substance: LAMOTRIGINE
     Indication: ACCIDENTAL POISONING
     Dosage: 600 MG, QD
     Route: 048
     Dates: start: 20180220, end: 20180220

REACTIONS (9)
  - Anticonvulsant drug level increased [Recovered/Resolved]
  - Nausea [Recovered/Resolved]
  - Cough [Recovered/Resolved]
  - Nystagmus [Recovered/Resolved]
  - Somnolence [Recovered/Resolved]
  - Accidental overdose [Recovered/Resolved]
  - Hypertonia [Recovered/Resolved]
  - Dyskinesia [Recovered/Resolved]
  - Vomiting [Recovered/Resolved]

NARRATIVE: CASE EVENT DATE: 20180220
